FAERS Safety Report 6118598-4 (Version None)
Quarter: 2009Q1

REPORT INFORMATION
  Report Type: 
  Country: None (occurrence: None)
  Receive Date: 20090314
  Receipt Date: 20090220
  Transmission Date: 20090719
  Serious: No
  Sender: FDA-Public Use
  Company Number: US-ABBOTT-09P-163-0558918-00

PATIENT
  Sex: Female
  Weight: 97.156 kg

DRUGS (8)
  1. HUMIRA [Suspect]
     Indication: CROHN'S DISEASE
     Route: 058
     Dates: start: 20080903
  2. XANAX [Concomitant]
     Indication: ANXIETY
     Dosage: UNKNOWN
     Route: 048
  3. AMITRIPTYLINE [Concomitant]
     Indication: DRUG USE FOR UNKNOWN INDICATION
     Route: 048
  4. YASMIN [Concomitant]
     Indication: CONTRACEPTION
     Dosage: UNKNOWN
     Route: 048
  5. LIALDA [Concomitant]
     Indication: CROHN'S DISEASE
     Route: 048
  6. FAMVIR [Concomitant]
     Indication: STOMATITIS
     Route: 048
  7. MULTI-VITAMIN [Concomitant]
     Indication: MEDICAL DIET
     Dosage: UNKNOWN
     Route: 048
  8. TYLENOL (CAPLET) [Concomitant]
     Indication: PAIN
     Dosage: UNKNOWN
     Route: 048

REACTIONS (1)
  - ARTHRALGIA [None]
